FAERS Safety Report 12608257 (Version 1)
Quarter: 2016Q3

REPORT INFORMATION
  Report Type: Spontaneous
  Country: US (occurrence: US)
  Receive Date: 20160729
  Receipt Date: 20160729
  Transmission Date: 20161109
  Serious: Yes (Life-Threatening, Other)
  Sender: FDA-Public Use
  Company Number: US-APOTEX-2016AP010051

PATIENT
  Age: 36 Year
  Sex: Female

DRUGS (5)
  1. ONDANSETRON INJECTION USP [Suspect]
     Active Substance: ONDANSETRON
     Indication: VOMITING
     Dosage: UNK
     Route: 065
  2. MORPHINE [Suspect]
     Active Substance: MORPHINE
     Indication: PAIN
     Dosage: 5 MG IV PUSH
     Route: 042
  3. ONDANSETRON INJECTION USP [Suspect]
     Active Substance: ONDANSETRON
     Indication: NAUSEA
     Dosage: 4MG IV PUSH
     Route: 042
  4. INDOMETHACIN                       /00003801/ [Suspect]
     Active Substance: INDOMETHACIN
     Indication: PRODUCT USED FOR UNKNOWN INDICATION
     Dosage: 50 MG, UNK
     Route: 048
  5. LIDOCAINE. [Concomitant]
     Active Substance: LIDOCAINE
     Indication: SPINAL ANAESTHESIA
     Dosage: UNK
     Route: 050

REACTIONS (3)
  - Cardiac arrest [Recovered/Resolved]
  - Exposure during pregnancy [Unknown]
  - Sinus bradycardia [Recovered/Resolved]
